FAERS Safety Report 19856077 (Version 1)
Quarter: 2021Q3

REPORT INFORMATION
  Report Type: Spontaneous
  Country: US (occurrence: US)
  Receive Date: 20210920
  Receipt Date: 20210920
  Transmission Date: 20211014
  Serious: Yes (Hospitalization)
  Sender: FDA-Public Use
  Company Number: None

PATIENT
  Age: 22 Year
  Sex: Female
  Weight: 86.2 kg

DRUGS (1)
  1. REGEN?COV [Suspect]
     Active Substance: CASIRIVIMAB\IMDEVIMAB
     Indication: COVID-19
     Dosage: ?          OTHER FREQUENCY:ONCE AT 310 ML/HR;?
     Route: 042
     Dates: start: 20210917, end: 20210917

REACTIONS (6)
  - Nausea [None]
  - Pallor [None]
  - Pain [None]
  - Hypoaesthesia [None]
  - Cold sweat [None]
  - Infusion related reaction [None]

NARRATIVE: CASE EVENT DATE: 20210917
